FAERS Safety Report 5756832-0 (Version None)
Quarter: 2008Q2

REPORT INFORMATION
  Report Type: 
  Country: None (occurrence: None)
  Receive Date: 20080529
  Receipt Date: 20080514
  Transmission Date: 20081010
  Serious: Yes (Other)
  Sender: FDA-Public Use
  Company Number: 060018K07USA

PATIENT
  Age: 21 Year
  Sex: Female

DRUGS (3)
  1. CLOMID [Suspect]
     Dosage: 50 MG, 150 MG
     Dates: start: 20061001, end: 20061201
  2. CLOMID [Suspect]
     Dosage: 50 MG, 150 MG
     Dates: start: 20061201
  3. LETROZOLE [Suspect]

REACTIONS (2)
  - ABORTION SPONTANEOUS [None]
  - DRUG EXPOSURE DURING PREGNANCY [None]
